FAERS Safety Report 11021061 (Version 1)
Quarter: 2015Q2

REPORT INFORMATION
  Report Type: Spontaneous
  Country: AT (occurrence: AT)
  Receive Date: 20150413
  Receipt Date: 20150413
  Transmission Date: 20150821
  Serious: Yes (Death, Other)
  Sender: FDA-Public Use
  Company Number: AT-TEVA-554587ISR

PATIENT
  Age: 51 Year
  Sex: Female

DRUGS (2)
  1. CAPECITABINE. [Interacting]
     Active Substance: CAPECITABINE
     Route: 065
  2. FOLIC ACID. [Suspect]
     Active Substance: FOLIC ACID
     Indication: INTENTIONAL PRODUCT MISUSE
     Route: 065

REACTIONS (7)
  - Intentional product misuse [Unknown]
  - Septic shock [Fatal]
  - Vomiting [Unknown]
  - Diarrhoea [Unknown]
  - Palmar-plantar erythrodysaesthesia syndrome [Unknown]
  - Drug interaction [Fatal]
  - Bone marrow failure [Unknown]
